FAERS Safety Report 8203293-8 (Version None)
Quarter: 2012Q1

REPORT INFORMATION
  Report Type: 
  Country: None (occurrence: None)
  Receive Date: 20120312
  Receipt Date: 20120301
  Transmission Date: 20120608
  Serious: Yes (Other)
  Sender: FDA-Public Use
  Company Number: AR-ROCHE-GNE324801

PATIENT
  Sex: Female

DRUGS (3)
  1. LOSARTAN POTASSIUM [Concomitant]
  2. ALPRAZOLAM [Concomitant]
  3. LUCENTIS [Suspect]
     Indication: PRODUCT USED FOR UNKNOWN INDICATION
     Dosage: DOSE: 3 AMPULES
     Route: 050

REACTIONS (3)
  - LIMB INJURY [None]
  - EYE DISORDER [None]
  - VISUAL ACUITY REDUCED [None]
